FAERS Safety Report 8654707 (Version 3)
Quarter: 2013Q4

REPORT INFORMATION
  Report Type: Spontaneous
  Country: US (occurrence: US)
  Receive Date: 20120709
  Receipt Date: 20131115
  Transmission Date: 20140711
  Serious: Yes (Other)
  Sender: FDA-Public Use
  Company Number: US-PFIZER INC-2012161318

PATIENT
  Age: 30 Year
  Sex: Female

DRUGS (1)
  1. CHANTIX [Suspect]
     Dosage: 0.5 MG, UNK
     Route: 048
     Dates: start: 20090312, end: 20090624

REACTIONS (5)
  - Suicide attempt [Unknown]
  - Depression [Unknown]
  - Loss of consciousness [Unknown]
  - Anxiety [Unknown]
  - Nightmare [Unknown]
